FAERS Safety Report 10529956 (Version 2)
Quarter: 2014Q4

REPORT INFORMATION
  Report Type: Spontaneous
  Country: IN (occurrence: IN)
  Receive Date: 20141021
  Receipt Date: 20141117
  Transmission Date: 20150528
  Serious: Yes (Other)
  Sender: FDA-Public Use
  Company Number: IN-009507513-1410IND009549

PATIENT
  Age: 58 Year
  Sex: Male

DRUGS (2)
  1. NOXAFIL [Suspect]
     Active Substance: POSACONAZOLE
     Dosage: UNK
     Route: 048
  2. TACROLIMUS. [Suspect]
     Active Substance: TACROLIMUS
     Dosage: UNK

REACTIONS (4)
  - Implantable defibrillator insertion [Unknown]
  - Ventricular arrhythmia [Recovered/Resolved]
  - Ventricular tachycardia [Unknown]
  - Cardiac pacemaker insertion [Unknown]
